FAERS Safety Report 5206238-8 (Version None)
Quarter: 2007Q1

REPORT INFORMATION
  Report Type: 
  Country: None (occurrence: None)
  Receive Date: 20070111
  Receipt Date: 20061229
  Transmission Date: 20070707
  Serious: Yes (Other)
  Sender: FDA-Public Use
  Company Number: US-SHR-US-2006-031777

PATIENT
  Age: 42 Year
  Sex: Female

DRUGS (4)
  1. BETASERON [Suspect]
     Dosage: 8 MIU, EVERY 2D
     Route: 058
     Dates: start: 20060126
  2. PERCOCET [Concomitant]
  3. REGLAN [Suspect]
  4. PREVACID [Concomitant]

REACTIONS (9)
  - BACK PAIN [None]
  - DROOLING [None]
  - DRUG HYPERSENSITIVITY [None]
  - NECK PAIN [None]
  - PARALYSIS [None]
  - POST PROCEDURAL COMPLICATION [None]
  - SPEECH DISORDER [None]
  - SWELLING [None]
  - VOMITING [None]
